FAERS Safety Report 12171227 (Version 1)
Quarter: 2016Q1

REPORT INFORMATION
  Report Type: Spontaneous
  Country: US (occurrence: None)
  Receive Date: 20160310
  Receipt Date: 20160310
  Transmission Date: 20160526
  Serious: Yes (Other)
  Sender: FDA-Public Use
  Company Number: None

PATIENT
  Age: 53 Year
  Sex: Female
  Weight: 47.63 kg

DRUGS (1)
  1. RESTASIS [Suspect]
     Active Substance: CYCLOSPORINE
     Indication: DRY EYE

REACTIONS (7)
  - Eye irritation [None]
  - Eye pruritus [None]
  - Eye swelling [None]
  - Eye infection [None]
  - Eye pain [None]
  - Lacrimation increased [None]
  - Photophobia [None]

NARRATIVE: CASE EVENT DATE: 20140911
